FAERS Safety Report 5267036-2 (Version None)
Quarter: 2007Q1

REPORT INFORMATION
  Report Type: 
  Country: None (occurrence: None)
  Receive Date: 20070316
  Receipt Date: 20070307
  Transmission Date: 20070707
  Serious: Yes (Hospitalization)
  Sender: FDA-Public Use
  Company Number: BR-JNJFOC-20070302487

PATIENT
  Age: 40 Year
  Sex: Female

DRUGS (3)
  1. HALDOL [Suspect]
     Indication: DRUG USE FOR UNKNOWN INDICATION
     Route: 048
  2. DIAZEPAM [Concomitant]
     Route: 048
  3. FENERGAN [Concomitant]
     Route: 048

REACTIONS (8)
  - ANXIETY [None]
  - BONE PAIN [None]
  - HYPOAESTHESIA [None]
  - MENSTRUAL DISORDER [None]
  - MENTAL DISORDER [None]
  - NASAL DISCOMFORT [None]
  - NODULE [None]
  - ORAL DISCOMFORT [None]
